FAERS Safety Report 7384344-X (Version None)
Quarter: 2011Q1

REPORT INFORMATION
  Report Type: 
  Country: None (occurrence: None)
  Receive Date: 20110330
  Receipt Date: 20101006
  Transmission Date: 20110831
  Serious: Yes (Other)
  Sender: FDA-Public Use
  Company Number: US-BAYER-200944023NA

PATIENT
  Sex: Female
  Weight: 62 kg

DRUGS (6)
  1. LEXAPRO [Concomitant]
     Indication: PANIC ATTACK
  2. LEXAPRO [Concomitant]
     Indication: DEPRESSION
  3. ALBUTEROL [Concomitant]
     Indication: ASTHMA
     Dosage: UNK
     Dates: start: 20040301, end: 20080101
  4. YAZ [Suspect]
     Indication: PREMENSTRUAL SYNDROME
     Dates: start: 20020401, end: 20060615
  5. YASMIN [Suspect]
     Indication: PREMENSTRUAL SYNDROME
     Dates: start: 20020401, end: 20060615
  6. LEXAPRO [Concomitant]
     Indication: ANXIETY
     Dosage: 1 TABLET, QD
     Route: 048
     Dates: start: 20040801

REACTIONS (11)
  - DYSPEPSIA [None]
  - BILIARY DYSKINESIA [None]
  - PROCEDURAL PAIN [None]
  - PAIN [None]
  - GALLBLADDER DISORDER [None]
  - GASTROOESOPHAGEAL REFLUX DISEASE [None]
  - CHOLECYSTITIS CHRONIC [None]
  - VOMITING [None]
  - ABDOMINAL PAIN UPPER [None]
  - GALLBLADDER CHOLESTEROLOSIS [None]
  - NAUSEA [None]
